FAERS Safety Report 14673547 (Version 6)
Quarter: 2019Q2

REPORT INFORMATION
  Report Type: Report from Study
  Country: US (occurrence: US)
  Receive Date: 20180323
  Receipt Date: 20190503
  Transmission Date: 20190711
  Serious: Yes (Other)
  Sender: FDA-Public Use
  Company Number: US-AMGEN-USASP2018037726

PATIENT
  Age: 41 Year
  Sex: Female
  Weight: 76.7 kg

DRUGS (13)
  1. ADDERALL [Concomitant]
     Active Substance: AMPHETAMINE ASPARTATE\AMPHETAMINE SULFATE\DEXTROAMPHETAMINE SACCHARATE\DEXTROAMPHETAMINE SULFATE
     Dosage: 10 MG, BID
     Route: 048
  2. PAZEO [Concomitant]
     Active Substance: OLOPATADINE HYDROCHLORIDE
     Dosage: UNK UNK, QD PLACE 1 DROP INTO BOTH EYES DAILY
  3. ESKALITH CR [Concomitant]
     Active Substance: LITHIUM CARBONATE
     Dosage: 450 MG, UNK TAKE I TABLET BY MOUTH EVERY MORNING AND 2 TABLETS AT BEDTIME
  4. ENBREL [Suspect]
     Active Substance: ETANERCEPT
     Dosage: 50 MG, QWK
     Route: 058
  5. NORCO [Concomitant]
     Active Substance: ACETAMINOPHEN\HYDROCODONE BITARTRATE
     Dosage: UNK FOUR TABLETS BY MOUTH EVERY FOUR HOURS AS NEEDED
     Route: 048
  6. LIDODERM [Concomitant]
     Active Substance: LIDOCAINE
     Dosage: UNK UNK, QD PLACE 1 PATCH ONTO THE SKIN DAILY
  7. ENBREL [Suspect]
     Active Substance: ETANERCEPT
     Indication: RHEUMATOID ARTHRITIS
     Dosage: 50 MG, QWK
     Route: 058
     Dates: start: 2017
  8. VOLTAREN [Concomitant]
     Active Substance: DICLOFENAC SODIUM
     Dosage: UNK APPLY TOPICALLY FOUR TIMES DAILY
  9. KEFLEX [Concomitant]
     Active Substance: CEPHALEXIN
     Dosage: UNK
  10. ZOLOFT [Concomitant]
     Active Substance: SERTRALINE HYDROCHLORIDE
     Dosage: 100 MG, QD BY MOUTH
     Route: 048
  11. PROTONIX [Concomitant]
     Active Substance: PANTOPRAZOLE SODIUM
     Dosage: 40 MG, QD BY MOUTH
     Route: 048
  12. XANAX [Concomitant]
     Active Substance: ALPRAZOLAM
     Dosage: 1 MG, TID WITH MEALS
     Route: 048
  13. MINIPRESS [Concomitant]
     Active Substance: PRAZOSIN HYDROCHLORIDE
     Dosage: 2 MG, QD BY MOUTH NIGHTLY
     Route: 048

REACTIONS (29)
  - Rheumatoid arthritis [Unknown]
  - Ankle fracture [Unknown]
  - Myalgia [Unknown]
  - Decreased appetite [Unknown]
  - Cardiac disorder [Unknown]
  - Epistaxis [Unknown]
  - Dyspnoea [Unknown]
  - Weight decreased [Unknown]
  - Skin warm [Unknown]
  - Chills [Unknown]
  - Cough [Unknown]
  - Erythema [Unknown]
  - Ligament rupture [Not Recovered/Not Resolved]
  - Pain of skin [Unknown]
  - Musculoskeletal discomfort [Not Recovered/Not Resolved]
  - Malaise [Unknown]
  - Diarrhoea [Unknown]
  - Dysuria [Unknown]
  - Pollakiuria [Unknown]
  - Fall [Unknown]
  - Haemoptysis [Unknown]
  - Gingival bleeding [Recovered/Resolved]
  - Influenza like illness [Unknown]
  - Fatigue [Unknown]
  - Impaired healing [Unknown]
  - Abdominal pain upper [Unknown]
  - Hyperhidrosis [Unknown]
  - Skin lesion [Unknown]
  - Pyrexia [Unknown]

NARRATIVE: CASE EVENT DATE: 201703
